FAERS Safety Report 18111680 (Version 5)
Quarter: 2021Q1

REPORT INFORMATION
  Report Type: Report from Study
  Country: None (occurrence: US)
  Receive Date: 20200804
  Receipt Date: 20210211
  Transmission Date: 20210419
  Serious: Yes (Hospitalization, Other)
  Sender: FDA-Public Use
  Company Number: US-ABBVIE-20K-163-3502601-00

PATIENT
  Sex: Female

DRUGS (2)
  1. HUMIRA [Suspect]
     Active Substance: ADALIMUMAB
     Route: 058
     Dates: start: 20200726, end: 202011
  2. HUMIRA [Suspect]
     Active Substance: ADALIMUMAB
     Indication: PSORIASIS
     Route: 058
     Dates: end: 201909

REACTIONS (29)
  - Eye disorder [Unknown]
  - Arthritis [Unknown]
  - Herpes zoster [Unknown]
  - Hypersensitivity [Unknown]
  - Abdominal pain upper [Recovering/Resolving]
  - Gastric bypass [Unknown]
  - Helplessness [Unknown]
  - Ear discomfort [Unknown]
  - Headache [Unknown]
  - Mental disorder [Unknown]
  - Emotional distress [Unknown]
  - Anxiety disorder [Not Recovered/Not Resolved]
  - Psoriasis [Not Recovered/Not Resolved]
  - Back pain [Unknown]
  - Renal injury [Unknown]
  - Frustration tolerance decreased [Unknown]
  - Anaemia [Unknown]
  - Nephrolithiasis [Unknown]
  - Head injury [Unknown]
  - Brain injury [Unknown]
  - Self-consciousness [Recovering/Resolving]
  - Immunodeficiency [Unknown]
  - Weight decreased [Unknown]
  - Pain [Unknown]
  - Injection site haemorrhage [Unknown]
  - Arthropathy [Unknown]
  - Skin irritation [Not Recovered/Not Resolved]
  - Stress [Unknown]
  - Musculoskeletal discomfort [Unknown]

NARRATIVE: CASE EVENT DATE: 2019
